FAERS Safety Report 7134244-5 (Version None)
Quarter: 2010Q4

REPORT INFORMATION
  Report Type: 
  Country: None (occurrence: None)
  Receive Date: 20101203
  Receipt Date: 20101123
  Transmission Date: 20110411
  Serious: Yes (Hospitalization)
  Sender: FDA-Public Use
  Company Number: FI-NOVOPROD-318958

PATIENT
  Age: 75 Year
  Sex: Female

DRUGS (8)
  1. VICTOZA [Suspect]
     Indication: DIABETES MELLITUS
     Dosage: 1.8 MG, QD
     Dates: start: 20100423, end: 20100530
  2. ACTIVELLE [Concomitant]
     Dosage: UNK
     Route: 048
  3. FURESIS [Concomitant]
     Dosage: 20 MG, BID
     Route: 048
  4. GLUCOPHAGE [Concomitant]
     Dosage: 1000 MG, UNK
     Route: 048
  5. ISMOX [Concomitant]
     Dosage: 1X2
     Route: 048
  6. EMCONCOR CHF [Concomitant]
     Dosage: 1X1
     Route: 048
  7. ASA-RATIOPHARM [Concomitant]
     Dosage: 1X1
     Route: 048
  8. IMOVANE [Concomitant]
     Dosage: WHEN NEEDED
     Route: 048

REACTIONS (1)
  - PANCREATITIS ACUTE [None]
